FAERS Safety Report 16761186 (Version 1)
Quarter: 2019Q3

REPORT INFORMATION
  Report Type: Spontaneous
  Country: US (occurrence: US)
  Receive Date: 20190830
  Receipt Date: 20190830
  Transmission Date: 20191005
  Serious: No
  Sender: FDA-Public Use
  Company Number: US-ANIPHARMA-2019-US-004927

PATIENT
  Sex: 0

DRUGS (2)
  1. ANASTROZOLE. [Suspect]
     Active Substance: ANASTROZOLE
     Indication: OFF LABEL USE
     Route: 065
  2. IBRANCE [Suspect]
     Active Substance: PALBOCICLIB
     Dates: start: 20190115

REACTIONS (6)
  - Nausea [Unknown]
  - Off label use [Unknown]
  - Fatigue [Unknown]
  - Hot flush [Unknown]
  - Decreased appetite [Unknown]
  - Weight decreased [Unknown]
